FAERS Safety Report 14027783 (Version 1)
Quarter: 2017Q3

REPORT INFORMATION
  Report Type: Spontaneous
  Country: GB (occurrence: GB)
  Receive Date: 20170929
  Receipt Date: 20170929
  Transmission Date: 20171128
  Serious: Yes (Other)
  Sender: FDA-Public Use
  Company Number: GB-MYLANLABS-2017M1059255

PATIENT
  Age: 68 Year
  Sex: Male
  Weight: 66.22 kg

DRUGS (3)
  1. PRAVASTATIN. [Suspect]
     Active Substance: PRAVASTATIN
     Indication: HYPERCHOLESTEROLAEMIA
     Route: 048
     Dates: start: 20160530
  2. IBUPROFEN. [Concomitant]
     Active Substance: IBUPROFEN
  3. NAPROXEN. [Concomitant]
     Active Substance: NAPROXEN

REACTIONS (4)
  - Arthralgia [Recovered/Resolved]
  - Myalgia [Recovered/Resolved]
  - Erectile dysfunction [Not Recovered/Not Resolved]
  - Dysgeusia [Not Recovered/Not Resolved]

NARRATIVE: CASE EVENT DATE: 20170522
